FAERS Safety Report 10229585 (Version 1)
Quarter: 2014Q2

REPORT INFORMATION
  Report Type: Spontaneous
  Country: US (occurrence: ES)
  Receive Date: 20140611
  Receipt Date: 20140611
  Transmission Date: 20141212
  Serious: Yes (Other)
  Sender: FDA-Public Use
  Company Number: 2014SP003170

PATIENT
  Age: 34 Year
  Sex: Female

DRUGS (14)
  1. METHOTREXATE [Suspect]
     Indication: PRIMARY MEDIASTINAL LARGE B-CELL LYMPHOMA
     Route: 042
     Dates: start: 20140216
  2. CYTARABINE [Suspect]
     Indication: PRIMARY MEDIASTINAL LARGE B-CELL LYMPHOMA
     Route: 042
     Dates: start: 20140216
  3. VINCRISTINE [Suspect]
     Indication: PRIMARY MEDIASTINAL LARGE B-CELL LYMPHOMA
     Route: 042
     Dates: start: 20140216
  4. BLEOMYCIN [Suspect]
     Indication: PRIMARY MEDIASTINAL LARGE B-CELL LYMPHOMA
     Route: 042
     Dates: start: 20140216
  5. CYCLOPHOSPHAMIDE [Suspect]
     Indication: PRIMARY MEDIASTINAL LARGE B-CELL LYMPHOMA
     Route: 042
     Dates: start: 20140216
  6. OMEPRAZOLE [Concomitant]
     Route: 048
  7. FLUCONAZOLE [Concomitant]
     Route: 048
  8. LORAZEPAM [Concomitant]
     Route: 048
  9. PREDNISOLONE [Concomitant]
     Route: 042
  10. VALACICLOVIR [Concomitant]
     Route: 048
  11. DECAPEPTYL /00975903/ [Concomitant]
     Route: 030
  12. MABTHERA [Concomitant]
     Route: 042
  13. SULFAMETHOXAZOLE [Concomitant]
     Route: 048
  14. TRIMETHOPRIM [Concomitant]
     Route: 048

REACTIONS (3)
  - Oral mucosa erosion [Recovering/Resolving]
  - Dermatitis bullous [Recovering/Resolving]
  - Mucosal erosion [Recovering/Resolving]
